FAERS Safety Report 8853221 (Version 3)
Quarter: 2013Q3

REPORT INFORMATION
  Report Type: Report from Study
  Country: JP (occurrence: JP)
  Receive Date: 20121022
  Receipt Date: 20130920
  Transmission Date: 20140515
  Serious: Yes (Other)
  Sender: FDA-Public Use
  Company Number: JP-VERTEX PHARMACEUTICAL INC.-AE-2012-008524

PATIENT
  Age: 69 Year
  Sex: Female

DRUGS (22)
  1. VX-950 (TELAPREVIR) [Suspect]
     Indication: CHRONIC HEPATITIS C
     Dosage: 1500 MG, QD
     Route: 048
     Dates: start: 20120417, end: 20120604
  2. VX-950 (TELAPREVIR) [Suspect]
     Dosage: 750 MG, QD
     Route: 048
     Dates: start: 20120605, end: 20120611
  3. VX-950 (TELAPREVIR) [Suspect]
     Dosage: 500 MG, QD
     Route: 048
     Dates: start: 20120612, end: 20120618
  4. REBETOL [Suspect]
     Indication: CHRONIC HEPATITIS C
     Dosage: 600 MG, QD
     Route: 048
     Dates: start: 20120417, end: 20120521
  5. REBETOL [Suspect]
     Dosage: 400 MG, QD
     Route: 048
     Dates: start: 20120522, end: 20120604
  6. REBETOL [Suspect]
     Dosage: 200 MG, QD
     Route: 048
     Dates: start: 20120605, end: 20120611
  7. REBETOL [Suspect]
     Dosage: 200 MG, QOD
     Route: 048
     Dates: start: 20120703, end: 20120716
  8. REBETOL [Suspect]
     Dosage: 200 MG, QD
     Route: 048
     Dates: start: 20120717, end: 20120730
  9. REBETOL [Suspect]
     Dosage: 400 MG, QD
     Route: 048
     Dates: start: 20120731, end: 20120827
  10. REBETOL [Suspect]
     Dosage: 200 MG, QD
     Route: 048
     Dates: start: 20120828, end: 20120924
  11. REBETOL [Suspect]
     Dosage: 400 MG, QD
     Route: 048
     Dates: start: 20120925
  12. PEGINTERFERON ALFA-2B [Suspect]
     Indication: CHRONIC HEPATITIS C
     Dosage: 1.63 ?G/KG, QW
     Route: 058
     Dates: start: 20120417, end: 20120430
  13. PEGINTERFERON ALFA-2B [Suspect]
     Dosage: 1.30 ?G/KG, QW
     Route: 058
     Dates: start: 20120501, end: 20120611
  14. PEGINTERFERON ALFA-2B [Suspect]
     Dosage: 1.08 ?G/KG, QW
     Route: 058
     Dates: start: 20120612, end: 20120716
  15. PEGINTERFERON ALFA-2B [Suspect]
     Dosage: 1.30 ?G/KG, QW
     Route: 058
     Dates: start: 20120717, end: 20120806
  16. PEGINTERFERON ALFA-2B [Suspect]
     Dosage: 1.08 ?G/KG, QW
     Route: 058
     Dates: start: 20120807, end: 20120813
  17. PEGINTERFERON ALFA-2B [Suspect]
     Dosage: 1.30 ?G/KG, QW
     Route: 058
     Dates: start: 20120814, end: 20120827
  18. PEGINTERFERON ALFA-2B [Suspect]
     Dosage: 1.08 ?G/KG, QW
     Route: 058
     Dates: start: 20120828, end: 20120917
  19. PEGINTERFERON ALFA-2B [Suspect]
     Dosage: 1.30 ?G/KG, QW
     Route: 058
     Dates: start: 20120918
  20. DEPAS [Suspect]
     Indication: ADVERSE EVENT
     Dosage: 0.5 MG, QD
     Route: 048
     Dates: start: 20120508, end: 20120716
  21. DOGMATYL [Suspect]
     Indication: ADVERSE EVENT
     Dosage: 100 MG, QD
     Route: 048
     Dates: start: 20120418, end: 20120710
  22. PREMINENT [Concomitant]
     Dosage: 1 DF, QD
     Route: 048
     Dates: start: 20120605, end: 20120618

REACTIONS (2)
  - White blood cell count decreased [Not Recovered/Not Resolved]
  - Haemoglobin decreased [Recovered/Resolved]
